FAERS Safety Report 22971130 (Version 9)
Quarter: 2024Q2

REPORT INFORMATION
  Report Type: Spontaneous
  Country: US (occurrence: US)
  Receive Date: 20230922
  Receipt Date: 20240417
  Transmission Date: 20240716
  Serious: No
  Sender: FDA-Public Use
  Company Number: US-PFIZER INC-202300291361

PATIENT
  Age: 67 Year
  Sex: Male
  Weight: 86.18 kg

DRUGS (4)
  1. GENOTROPIN [Suspect]
     Active Substance: SOMATROPIN
     Indication: Empty sella syndrome
     Dosage: 4 MG, 1X/DAY, [4MG, ONCE A DAY AT NIGHT, INJECTION]
     Dates: start: 2016
  2. GENOTROPIN [Suspect]
     Active Substance: SOMATROPIN
     Indication: Growth hormone deficiency
     Dosage: 0.8 MG(0.8 MG INSTEAD OF 4MG)
     Dates: start: 20230831
  3. GENOTROPIN [Suspect]
     Active Substance: SOMATROPIN
     Dosage: 0.4 MG, 1X/DAY
     Route: 058
     Dates: start: 20230131
  4. HUMIRA [Concomitant]
     Active Substance: ADALIMUMAB
     Dosage: UNK

REACTIONS (7)
  - Off label use [Unknown]
  - Expired device used [Unknown]
  - Incorrect dose administered by device [Unknown]
  - Wrong technique in device usage process [Unknown]
  - Incorrect dose administered [Unknown]
  - Device power source issue [Unknown]
  - Device issue [Unknown]

NARRATIVE: CASE EVENT DATE: 20160101
